FAERS Safety Report 9344202 (Version 1)
Quarter: 2013Q2

REPORT INFORMATION
  Report Type: Spontaneous
  Country: US (occurrence: None)
  Receive Date: 20130610
  Receipt Date: 20130610
  Transmission Date: 20140414
  Serious: Yes (Hospitalization, Other)
  Sender: FDA-Public Use
  Company Number: ADE13-013

PATIENT
  Age: 68 Year
  Sex: Male
  Weight: 76.2 kg

DRUGS (1)
  1. HEPARIN [Suspect]
     Indication: CARDIAC OPERATION
     Dosage: TOTAL
     Route: 042

REACTIONS (9)
  - Cyanosis [None]
  - Livedo reticularis [None]
  - Pain [None]
  - Platelet count decreased [None]
  - Heparin-induced thrombocytopenia [None]
  - Thrombosis [None]
  - Laboratory test abnormal [None]
  - Limb injury [None]
  - Limb injury [None]
